FAERS Safety Report 18013034 (Version 2)
Quarter: 2020Q3

REPORT INFORMATION
  Report Type: Spontaneous
  Country: US (occurrence: US)
  Receive Date: 20200713
  Receipt Date: 20200717
  Transmission Date: 20201103
  Serious: No
  Sender: FDA-Public Use
  Company Number: US-PFIZER INC-2020262750

PATIENT
  Age: 54 Year
  Sex: Female
  Weight: 59.87 kg

DRUGS (2)
  1. EUCRISA [Suspect]
     Active Substance: CRISABOROLE
     Indication: EAR PRURITUS
     Dosage: UNK (APPLY TO THE AFFECTED AREA, ONCE A DAY 5 DAYS A WEEK)
     Dates: start: 202003
  2. EUCRISA [Suspect]
     Active Substance: CRISABOROLE
     Indication: DRY SKIN

REACTIONS (5)
  - Poor quality product administered [Unknown]
  - Drug effective for unapproved indication [Unknown]
  - Product use in unapproved indication [Unknown]
  - Product physical issue [Unknown]
  - Off label use [Unknown]

NARRATIVE: CASE EVENT DATE: 202003
